FAERS Safety Report 7271687-3 (Version None)
Quarter: 2011Q1

REPORT INFORMATION
  Report Type: 
  Country: None (occurrence: None)
  Receive Date: 20110203
  Receipt Date: 20110126
  Transmission Date: 20110831
  Serious: Yes (Hospitalization)
  Sender: FDA-Public Use
  Company Number: US-JNJFOC-20110107347

PATIENT
  Sex: Female
  Weight: 57.15 kg

DRUGS (1)
  1. LEVAQUIN [Suspect]
     Indication: ILL-DEFINED DISORDER
     Route: 048

REACTIONS (5)
  - BLOOD POTASSIUM DECREASED [None]
  - ASTHENIA [None]
  - HYPOTENSION [None]
  - HEART RATE IRREGULAR [None]
  - DIARRHOEA [None]
